FAERS Safety Report 25813700 (Version 1)
Quarter: 2025Q3

REPORT INFORMATION
  Report Type: Spontaneous
  Country: US (occurrence: US)
  Receive Date: 20250917
  Receipt Date: 20250917
  Transmission Date: 20251020
  Serious: No
  Sender: BAYER HEALTHCARE PHARMACEUTICALS INC.
  Company Number: US-BAYER-2025A122676

PATIENT
  Age: 60 Year
  Sex: Male

DRUGS (1)
  1. ACARBOSE [Suspect]
     Active Substance: ACARBOSE
     Indication: Hyperinsulinaemic hypoglycaemia

REACTIONS (2)
  - Product use in unapproved indication [None]
  - Product prescribing issue [None]
